FAERS Safety Report 4542042-1 (Version None)
Quarter: 2004Q4

REPORT INFORMATION
  Report Type: 
  Country: None (occurrence: None)
  Receive Date: 20041230
  Receipt Date: 20000822
  Transmission Date: 20050328
  Serious: Yes (Hospitalization)
  Sender: FDA-Public Use
  Company Number: US-MERCK-00082900

PATIENT
  Age: 79 Year
  Sex: Male

DRUGS (6)
  1. VIOXX [Suspect]
     Indication: ARTHRITIS
     Route: 048
     Dates: start: 20000201, end: 20000818
  2. VIOXX [Suspect]
     Indication: BACK PAIN
     Route: 048
     Dates: start: 20000201, end: 20000818
  3. LEVAQUIN [Concomitant]
     Route: 065
     Dates: end: 20000818
  4. CIPRO [Concomitant]
     Route: 065
     Dates: end: 20000818
  5. PYRIDIUM [Concomitant]
     Route: 065
  6. FLOMAX [Concomitant]
     Indication: BENIGN PROSTATIC HYPERPLASIA
     Route: 065
     Dates: end: 20000818

REACTIONS (4)
  - PROSTATITIS [None]
  - RENAL FAILURE ACUTE [None]
  - RENAL TUBULAR NECROSIS [None]
  - URINARY TRACT INFECTION [None]
